FAERS Safety Report 18666661 (Version 1)
Quarter: 2020Q4

REPORT INFORMATION
  Report Type: Spontaneous
  Country: US (occurrence: US)
  Receive Date: 20201227
  Receipt Date: 20201227
  Transmission Date: 20210114
  Serious: Yes (Other)
  Sender: FDA-Public Use
  Company Number: US-ORIENT PHARMA-000042

PATIENT
  Age: 70 Year
  Sex: Female

DRUGS (3)
  1. VANCOMYCIN [Suspect]
     Active Substance: VANCOMYCIN
     Indication: ARTHRITIS INFECTIVE
  2. CLINDAMYCIN. [Concomitant]
     Active Substance: CLINDAMYCIN
  3. CEFALEXIN [Concomitant]
     Active Substance: CEPHALEXIN

REACTIONS (1)
  - Acute generalised exanthematous pustulosis [Recovered/Resolved]
